FAERS Safety Report 4917976-6 (Version None)
Quarter: 2006Q1

REPORT INFORMATION
  Report Type: 
  Country: None (occurrence: None)
  Receive Date: 20060221
  Receipt Date: 20051005
  Transmission Date: 20060701
  Serious: Yes (Hospitalization, Disabling, Other)
  Sender: FDA-Public Use
  Company Number: US-MERCK-0510USA05314

PATIENT
  Age: 57 Year
  Sex: Male
  Weight: 86 kg

DRUGS (3)
  1. VIOXX [Suspect]
     Indication: ARTHRITIS
     Route: 048
     Dates: start: 19990101, end: 20040101
  2. PREDNISONE [Concomitant]
     Route: 065
  3. ARAVA [Concomitant]
     Route: 065

REACTIONS (15)
  - ANEURYSM [None]
  - CARDIAC MURMUR [None]
  - CARPAL TUNNEL SYNDROME [None]
  - DEAFNESS [None]
  - DYSPEPSIA [None]
  - GASTROOESOPHAGEAL REFLUX DISEASE [None]
  - HYPERTENSION [None]
  - INTERSTITIAL LUNG DISEASE [None]
  - INTERVERTEBRAL DISC DEGENERATION [None]
  - INTERVERTEBRAL DISC PROTRUSION [None]
  - INTRACRANIAL ANEURYSM [None]
  - JOINT INJURY [None]
  - PNEUMONIA [None]
  - SPINAL COLUMN STENOSIS [None]
  - SUBARACHNOID HAEMORRHAGE [None]
